FAERS Safety Report 14569147 (Version 1)
Quarter: 2018Q1

REPORT INFORMATION
  Report Type: Spontaneous
  Country: US (occurrence: US)
  Receive Date: 20180223
  Receipt Date: 20180223
  Transmission Date: 20180509
  Serious: Yes (Hospitalization)
  Sender: FDA-Public Use
  Company Number: None

PATIENT
  Sex: Female

DRUGS (2)
  1. PHENTERMINE. [Suspect]
     Active Substance: PHENTERMINE
     Indication: WEIGHT DECREASED
     Route: 048
     Dates: start: 20171213, end: 20180202
  2. BIOTIN [Concomitant]
     Active Substance: BIOTIN

REACTIONS (11)
  - Anxiety [None]
  - Chest pain [None]
  - Nervous system disorder [None]
  - Nausea [None]
  - Vertigo [None]
  - Dizziness [None]
  - Headache [None]
  - Myasthenia gravis [None]
  - Neuropathy peripheral [None]
  - Diplopia [None]
  - Migraine [None]

NARRATIVE: CASE EVENT DATE: 20180202
